FAERS Safety Report 21081564 (Version 6)
Quarter: 2023Q1

REPORT INFORMATION
  Report Type: Report from Study
  Country: BR (occurrence: BR)
  Receive Date: 20220714
  Receipt Date: 20230111
  Transmission Date: 20230418
  Serious: Yes (Hospitalization)
  Sender: FDA-Public Use
  Company Number: BR-JNJFOC-20220702317

PATIENT
  Age: 71 Year
  Sex: Male
  Weight: 55.4 kg

DRUGS (20)
  1. BORTEZOMIB [Suspect]
     Active Substance: BORTEZOMIB
     Indication: Plasma cell myeloma
     Dosage: 0.88 MILLILITER
     Route: 058
     Dates: start: 20220610
  2. DEXAMETHASONE [Suspect]
     Active Substance: DEXAMETHASONE
     Indication: Plasma cell myeloma
     Dosage: 20 MILLIGRAM
     Route: 048
     Dates: start: 20220610
  3. LENALIDOMIDE [Suspect]
     Active Substance: LENALIDOMIDE
     Indication: Plasma cell myeloma
     Dosage: 10 MILLIGRAM
     Route: 048
     Dates: start: 20220610
  4. ENTRESTO [Concomitant]
     Active Substance: SACUBITRIL\VALSARTAN
     Indication: Ischaemic cardiomyopathy
     Dosage: UNK, BID
     Route: 048
     Dates: start: 20220519, end: 20220620
  5. ENTRESTO [Concomitant]
     Active Substance: SACUBITRIL\VALSARTAN
     Indication: Oedema peripheral
     Dosage: UNK, QD
     Route: 048
     Dates: start: 20220621, end: 20220628
  6. DAPAGLIFLOZIN [Concomitant]
     Active Substance: DAPAGLIFLOZIN
     Indication: Ischaemic cardiomyopathy
     Dosage: 10 MILLIGRAM, QD
     Route: 048
     Dates: start: 20220519
  7. TRIMETHOPRIM [Concomitant]
     Active Substance: TRIMETHOPRIM
     Indication: Antifungal prophylaxis
     Dosage: 160 MILLIGRAM, QD
     Route: 048
     Dates: start: 20220610
  8. VALACYCLOVIR [Concomitant]
     Active Substance: VALACYCLOVIR HYDROCHLORIDE
     Indication: Antibiotic prophylaxis
     Dosage: 500 MILLIGRAM, BID
     Route: 048
     Dates: start: 20220610
  9. SULFAMETHOXAZOLE [Concomitant]
     Active Substance: SULFAMETHOXAZOLE
     Indication: Antifungal prophylaxis
     Dosage: 800 MILLIGRAM, QD
     Route: 048
     Dates: start: 20220610
  10. PREGABALIN [Concomitant]
     Active Substance: PREGABALIN
     Indication: Cancer pain
     Dosage: 75 MILLIGRAM, BID
     Route: 048
     Dates: start: 20220505
  11. TRAMADOL [Concomitant]
     Active Substance: TRAMADOL
     Indication: Cancer pain
     Dosage: 50 MILLIGRAM, TID
     Route: 048
     Dates: start: 20220505
  12. ASPIRIN [Concomitant]
     Active Substance: ASPIRIN
     Indication: Ischaemic cardiomyopathy
     Dosage: 100 MILLIGRAM, QD
     Route: 048
     Dates: start: 20220519
  13. ASPIRIN [Concomitant]
     Active Substance: ASPIRIN
     Indication: Prophylaxis
     Dosage: 100 MILLIGRAM, QD
     Route: 048
     Dates: start: 20220610
  14. ROSUVASTATIN [Concomitant]
     Active Substance: ROSUVASTATIN
     Indication: Ischaemic cardiomyopathy
     Dosage: 5 MILLIGRAM, QD
     Route: 048
     Dates: start: 20220519
  15. PANTOPRAZOLE [Concomitant]
     Active Substance: PANTOPRAZOLE
     Indication: Prophylaxis against gastrointestinal ulcer
     Dosage: 40 MILLIGRAM, QD
     Route: 048
     Dates: start: 20220610
  16. ACETAMINOPHEN [Concomitant]
     Active Substance: ACETAMINOPHEN
     Indication: Cancer pain
     Dosage: 500 MILLIGRAM, 3/WEEK
     Route: 048
     Dates: start: 20220620
  17. CARVEDILOL [Concomitant]
     Active Substance: CARVEDILOL
     Indication: Ischaemic cardiomyopathy
     Dosage: 12.25 MILLIGRAM, BID
     Route: 048
     Dates: start: 20220530, end: 20220620
  18. CARVEDILOL [Concomitant]
     Active Substance: CARVEDILOL
     Indication: Oedema peripheral
     Dosage: 6.25 MILLIGRAM, BID
     Route: 048
     Dates: start: 20220621, end: 20220711
  19. SENNA LEAF [Concomitant]
     Active Substance: SENNA LEAF
     Indication: Constipation prophylaxis
     Dosage: 250 GRAM
     Route: 048
     Dates: start: 20220613
  20. CYCLOBENZAPRINE [Concomitant]
     Active Substance: CYCLOBENZAPRINE
     Indication: Myalgia
     Dosage: 5 MILLIGRAM, QD
     Route: 048
     Dates: start: 20220613, end: 20220617

REACTIONS (1)
  - Pneumonia bacterial [Recovered/Resolved]

NARRATIVE: CASE EVENT DATE: 20220628
